FAERS Safety Report 19184214 (Version 1)
Quarter: 2021Q2

REPORT INFORMATION
  Report Type: Spontaneous
  Country: ES (occurrence: ES)
  Receive Date: 20210427
  Receipt Date: 20210427
  Transmission Date: 20210717
  Serious: Yes (Hospitalization)
  Sender: FDA-Public Use
  Company Number: ES-BRISTOL-MYERS SQUIBB COMPANY-BMS-2021-039149

PATIENT
  Age: 97 Year
  Sex: Male

DRUGS (1)
  1. ELIQUIS [Suspect]
     Active Substance: APIXABAN
     Indication: CEREBROVASCULAR ACCIDENT PROPHYLAXIS
     Dosage: 2.5 MG (1?0?1), 12 HOURS
     Route: 048
     Dates: start: 20200604

REACTIONS (2)
  - Iron deficiency anaemia [Recovered/Resolved]
  - Occult blood [Recovering/Resolving]

NARRATIVE: CASE EVENT DATE: 20210323
